FAERS Safety Report 10330218 (Version 2)
Quarter: 2014Q3

REPORT INFORMATION
  Report Type: Spontaneous
  Country: US (occurrence: US)
  Receive Date: 20140721
  Receipt Date: 20140728
  Transmission Date: 20150326
  Serious: Yes (Death, Hospitalization)
  Sender: FDA-Public Use
  Company Number: US-B.I. PHARMACEUTICALS,INC./RIDGEFIELD-2014-BI-33320BP

PATIENT
  Age: 71 Year
  Sex: Male

DRUGS (26)
  1. INSULINE [Concomitant]
     Active Substance: INSULIN NOS
     Dosage: FORMULATION: SYRINGE MICROPHINE 28GX0.5 MISCELLANEOUS
     Route: 065
  2. GENTAMYCINE SULPHATE [Concomitant]
     Dosage: ROUTE: APPLICATION TO AFFECTED AREA EXTERNALLY, STRENGTH: 0.1%
     Route: 050
  3. TRIAMCLNOLONE ACETANIDE [Concomitant]
     Dosage: ROUTE: APPLICATION SPARINGLY TO AFFECTED AREA EXTERNALLY, STRENGTH: 0.1%
     Route: 050
  4. CPAP [Concomitant]
     Active Substance: DEVICE
     Route: 065
     Dates: start: 20131216
  5. METOLAZONE. [Concomitant]
     Active Substance: METOLAZONE
     Dosage: 2.5 NR
     Route: 048
  6. SYMBICORT [Concomitant]
     Active Substance: BUDESONIDE\FORMOTEROL FUMARATE DIHYDRATE
     Dosage: 1 PUF
     Route: 055
     Dates: start: 20140224
  7. METOPROLOL SUCCINATE. [Concomitant]
     Active Substance: METOPROLOL SUCCINATE
     Dosage: 50 MG
     Route: 048
  8. NOVOLIN R [Concomitant]
     Active Substance: INSULIN HUMAN
     Dosage: STRENGTH: 100U/ML, DOSE PER APPLICATION: 28UNITS AM, 20PM
     Route: 065
  9. CONTOUR [Concomitant]
     Dosage: FORMULATION: BAYER TEST 0 STRIP, ROUTE: AS DIRECTED IN VITRO
     Route: 050
     Dates: start: 20130917
  10. OXYGEN. [Concomitant]
     Active Substance: OXYGEN
     Dosage: ROUTE: NASAL CONTINUOUS
     Route: 050
  11. MUPIROCINE CALCIUM [Concomitant]
     Dosage: ROUTE: APPLICATION TO AFFECTED AREA EXTERNALLY, STRENGTH: 2%
     Route: 050
     Dates: start: 20140404
  12. GABAPENTINE [Concomitant]
     Active Substance: GABAPENTIN
     Dosage: 4 ANZ
     Route: 048
     Dates: start: 20140414
  13. NITROSTAT [Concomitant]
     Active Substance: NITROGLYCERIN
     Route: 060
  14. SPIRIVA [Suspect]
     Active Substance: TIOTROPIUM BROMIDE MONOHYDRATE
     Indication: CHRONIC OBSTRUCTIVE PULMONARY DISEASE
     Dosage: 18 MCG
     Route: 055
     Dates: start: 20140224
  15. HYDROCODONE ACETOAMINOPHEN [Concomitant]
     Dosage: STRENGTH: 10-325MG
     Route: 048
  16. THEOPHYLLINE [Concomitant]
     Active Substance: THEOPHYLLINE
     Dosage: 200 MG
     Route: 048
  17. PAROXETINE HCL [Concomitant]
     Active Substance: PAROXETINE HYDROCHLORIDE
     Dosage: 40 MG
     Route: 048
  18. NOVOLIN N [Concomitant]
     Active Substance: INSULIN HUMAN
     Dosage: STRENGTH: 100U/ML, DAILY DOSE: 30 UNITS AM, 18 PM
     Route: 058
  19. CRESTOR [Concomitant]
     Active Substance: ROSUVASTATIN CALCIUM
     Dosage: 10 MG
     Route: 048
     Dates: start: 20140224
  20. ASPIRIN. [Concomitant]
     Active Substance: ASPIRIN
     Dosage: 325 MG
     Route: 048
  21. DILTIAZEM HCL [Concomitant]
     Active Substance: DILTIAZEM HYDROCHLORIDE
     Dosage: 180 MG
     Route: 048
  22. FUROSEMIDE. [Concomitant]
     Active Substance: FUROSEMIDE
     Dosage: 2 ANZ
     Route: 048
  23. POTASSIUM CHLORIDE. [Concomitant]
     Active Substance: POTASSIUM CHLORIDE
     Dosage: 20 MEQ
     Route: 048
  24. OMEPRAZOLE. [Concomitant]
     Active Substance: OMEPRAZOLE
     Dosage: 20 MG
     Route: 048
  25. METOLAZONE. [Concomitant]
     Active Substance: METOLAZONE
     Dosage: 2.5 NR
     Route: 048
  26. ALLOPURINOL. [Concomitant]
     Active Substance: ALLOPURINOL
     Dosage: 0.5 ANZ
     Route: 048

REACTIONS (1)
  - Chronic obstructive pulmonary disease [Fatal]

NARRATIVE: CASE EVENT DATE: 20140610
